FAERS Safety Report 22177347 (Version 1)
Quarter: 2023Q2

REPORT INFORMATION
  Report Type: Report from Study
  Country: CA (occurrence: CA)
  Receive Date: 20230405
  Receipt Date: 20230405
  Transmission Date: 20230722
  Serious: No
  Sender: FDA-Public Use
  Company Number: CA-CHEMOCENTRYX, INC.-2023CACCXI0800

PATIENT

DRUGS (1)
  1. TAVNEOS [Suspect]
     Active Substance: AVACOPAN
     Indication: Antineutrophil cytoplasmic antibody
     Dosage: 60 MG (30MG, 2 IN 1 D)
     Route: 048
     Dates: start: 20230201

REACTIONS (1)
  - Illness [Unknown]
